FAERS Safety Report 13635155 (Version 1)
Quarter: 2017Q2

REPORT INFORMATION
  Report Type: Spontaneous
  Country: JP (occurrence: JP)
  Receive Date: 20170609
  Receipt Date: 20170609
  Transmission Date: 20170830
  Serious: Yes (Hospitalization, Disabling)
  Sender: FDA-Public Use
  Company Number: JP-ELI_LILLY_AND_COMPANY-JP201705006934

PATIENT
  Age: 32 Year
  Sex: Male
  Weight: 75 kg

DRUGS (14)
  1. BAYASPIRIN [Suspect]
     Active Substance: ASPIRIN
     Indication: ACUTE MYOCARDIAL INFARCTION
     Dosage: 100 MG, DAILY
     Route: 048
     Dates: start: 20160226
  2. BLOPRESS [Concomitant]
     Active Substance: CANDESARTAN CILEXETIL
     Indication: ACUTE MYOCARDIAL INFARCTION
     Dosage: 2 MG, DAILY
     Route: 048
     Dates: start: 20160305
  3. BAYASPIRIN [Suspect]
     Active Substance: ASPIRIN
     Dosage: 200 MG, DAILY
     Route: 048
     Dates: start: 20160226, end: 20160226
  4. AZILVA [Concomitant]
     Active Substance: AZILSARTAN KAMEDOXOMIL
     Indication: ACUTE MYOCARDIAL INFARCTION
     Dosage: 20 MG, DAILY
     Route: 048
     Dates: start: 20160226, end: 20160301
  5. BAYASPIRIN [Suspect]
     Active Substance: ASPIRIN
     Dosage: 100 MG, DAILY
     Route: 048
     Dates: start: 20160227
  6. ALLELOCK [Concomitant]
     Active Substance: OLOPATADINE HYDROCHLORIDE
     Indication: SEASONAL ALLERGY
     Dosage: 10 MG, BID
     Route: 048
     Dates: start: 20160303
  7. ARTIST [Concomitant]
     Active Substance: CARVEDILOL
     Indication: ACUTE MYOCARDIAL INFARCTION
     Dosage: 1.25 MG, BID
     Route: 048
     Dates: start: 20160226
  8. PRASUGREL HYDROCHLORIDE [Suspect]
     Active Substance: PRASUGREL HYDROCHLORIDE
     Dosage: 3.75 MG, DAILY
     Route: 048
     Dates: start: 20160227, end: 20160323
  9. ELIQUIS [Suspect]
     Active Substance: APIXABAN
     Indication: ACUTE MYOCARDIAL INFARCTION
     Dosage: 10 MG, BID
     Route: 048
     Dates: start: 20160303
  10. ESOMEPRAZOLE MAGNESIUM. [Concomitant]
     Active Substance: ESOMEPRAZOLE MAGNESIUM
     Indication: ACUTE MYOCARDIAL INFARCTION
     Dosage: 20 MG, DAILY
     Route: 048
     Dates: start: 20160226
  11. ONON [Concomitant]
     Active Substance: PRANLUKAST
     Indication: SEASONAL ALLERGY
     Dosage: 450 MG, BID
     Route: 048
     Dates: start: 20160303
  12. PRASUGREL HYDROCHLORIDE [Suspect]
     Active Substance: PRASUGREL HYDROCHLORIDE
     Indication: ACUTE MYOCARDIAL INFARCTION
     Dosage: 20 MG, SINGLE
     Route: 048
     Dates: start: 20160226, end: 20160226
  13. CRESTOR [Concomitant]
     Active Substance: ROSUVASTATIN CALCIUM
     Indication: ACUTE MYOCARDIAL INFARCTION
     Dosage: 5 MG, DAILY
     Route: 048
     Dates: start: 20160226
  14. TANATRIL [Concomitant]
     Active Substance: IMIDAPRIL
     Indication: ACUTE MYOCARDIAL INFARCTION
     Dosage: 5 MG, DAILY
     Route: 048
     Dates: start: 20160302

REACTIONS (2)
  - Haemorrhagic cerebral infarction [Recovering/Resolving]
  - Cardiac aneurysm [Recovered/Resolved]

NARRATIVE: CASE EVENT DATE: 20160229
